FAERS Safety Report 12549512 (Version 1)
Quarter: 2016Q3

REPORT INFORMATION
  Report Type: Spontaneous
  Country: US (occurrence: US)
  Receive Date: 20160712
  Receipt Date: 20160712
  Transmission Date: 20161109
  Serious: No
  Sender: FDA-Public Use
  Company Number: US-ENDO PHARMACEUTICALS INC.-2016-001564

PATIENT
  Sex: Male
  Weight: 81.27 kg

DRUGS (2)
  1. EDEX [Suspect]
     Active Substance: ALPROSTADIL
     Indication: ERECTILE DYSFUNCTION
     Dosage: 5 MCG AND 7.5 MCG DOSAGE
     Route: 065
  2. HEART MEDICATIONS [Concomitant]
     Indication: CARDIAC DISORDER

REACTIONS (1)
  - Drug ineffective [Unknown]
